FAERS Safety Report 15112334 (Version 3)
Quarter: 2018Q3

REPORT INFORMATION
  Report Type: Report from Study
  Country: JP (occurrence: JP)
  Receive Date: 20180705
  Receipt Date: 20180918
  Transmission Date: 20181010
  Serious: Yes (Death, Other)
  Sender: FDA-Public Use
  Company Number: JP-BRISTOL-MYERS SQUIBB COMPANY-BMS-2018-060290

PATIENT
  Age: 79 Year
  Sex: Female
  Weight: 34 kg

DRUGS (5)
  1. VELCADE [Suspect]
     Active Substance: BORTEZOMIB
     Indication: PRODUCT USED FOR UNKNOWN INDICATION
     Route: 065
  2. DEXAMETHASONE. [Concomitant]
     Active Substance: DEXAMETHASONE
     Indication: PLASMA CELL MYELOMA
     Dosage: 6.6 MG, QWK
     Route: 041
     Dates: start: 20170522, end: 20170522
  3. ELOTUZUMAB. [Suspect]
     Active Substance: ELOTUZUMAB
     Indication: PLASMA CELL MYELOMA
     Dosage: 10 MG/KG, QWK
     Route: 041
     Dates: start: 20170522
  4. DEXAMETHASONE. [Concomitant]
     Active Substance: DEXAMETHASONE
     Indication: PLASMA CELL MYELOMA
     Dosage: 20 MG, QWK
     Route: 048
     Dates: start: 20170522, end: 20170522
  5. LENALIDOMIDE [Concomitant]
     Active Substance: LENALIDOMIDE
     Indication: PLASMA CELL MYELOMA
     Dosage: 10 MG, QD
     Route: 048
     Dates: start: 20170522, end: 20170523

REACTIONS (19)
  - Asthenia [Unknown]
  - Muscular weakness [Unknown]
  - Altered state of consciousness [Fatal]
  - Feeding disorder [Recovering/Resolving]
  - Malignant neoplasm progression [Fatal]
  - Nausea [Unknown]
  - Pyrexia [Unknown]
  - Back pain [Unknown]
  - Spinal cord compression [Unknown]
  - Paraneoplastic syndrome [Unknown]
  - Pancytopenia [Unknown]
  - Disorientation [Unknown]
  - Dyskinesia [Unknown]
  - Neuropathy peripheral [Unknown]
  - Somnolence [Unknown]
  - Hepatic encephalopathy [Unknown]
  - Malaise [Unknown]
  - Gait inability [Unknown]
  - Hyperammonaemia [Unknown]

NARRATIVE: CASE EVENT DATE: 20170524
